FAERS Safety Report 5706636-X (Version None)
Quarter: 2008Q2

REPORT INFORMATION
  Report Type: 
  Country: None (occurrence: None)
  Receive Date: 20080414
  Receipt Date: 20080124
  Transmission Date: 20081010
  Serious: Yes (Hospitalization, Other)
  Sender: FDA-Public Use
  Company Number: TRP_05635_2008

PATIENT
  Sex: Female
  Weight: 74.8435 kg

DRUGS (5)
  1. RIBAVIRIN [Suspect]
     Indication: HEPATITIS C
     Dosage: (600 MG ORAL), (400 MG ORAL)
     Route: 048
     Dates: start: 20061209, end: 20070301
  2. RIBAVIRIN [Suspect]
     Indication: HEPATITIS C
     Dosage: (600 MG ORAL), (400 MG ORAL)
     Route: 048
     Dates: start: 20061209, end: 20070301
  3. INFERGEN/INTERFERON ALFACON-1/VALEANT 15 UG [Suspect]
     Indication: HEPATITIS C
     Dosage: (15 UG QD SUBCUTANEOUS), (7.5 UG QD SUBCUTANEOUS)
     Route: 058
     Dates: start: 20061209, end: 20070104
  4. INFERGEN/INTERFERON ALFACON-1/VALEANT 15 UG [Suspect]
     Indication: HEPATITIS C
     Dosage: (15 UG QD SUBCUTANEOUS), (7.5 UG QD SUBCUTANEOUS)
     Route: 058
     Dates: start: 20070105, end: 20070301
  5. ATENOLOL [Concomitant]

REACTIONS (6)
  - DRUG INEFFECTIVE [None]
  - EAR INFECTION [None]
  - HEPATITIS C RNA POSITIVE [None]
  - PHARYNGITIS STREPTOCOCCAL [None]
  - SINUS HEADACHE [None]
  - TYMPANIC MEMBRANE PERFORATION [None]
